FAERS Safety Report 23205691 (Version 2)
Quarter: 2023Q4

REPORT INFORMATION
  Report Type: Report from Study
  Country: US (occurrence: US)
  Receive Date: 20231120
  Receipt Date: 20231211
  Transmission Date: 20240110
  Serious: Yes (Other)
  Sender: FDA-Public Use
  Company Number: US-SANOFI-01808131

PATIENT
  Age: 69 Year
  Sex: Male
  Weight: 177 kg

DRUGS (14)
  1. INSULIN GLARGINE [Suspect]
     Active Substance: INSULIN GLARGINE
     Indication: Type 2 diabetes mellitus
     Dosage: 40 IU, QD
     Route: 058
     Dates: start: 20230921, end: 20231010
  2. PLAVIX [Concomitant]
     Active Substance: CLOPIDOGREL BISULFATE
     Dosage: 1 DF, QD
     Dates: start: 20230410
  3. LOFIBRA [FENOFIBRATE] [Concomitant]
     Dosage: 1 DF, QD
     Route: 048
     Dates: start: 20230711
  4. HUMALOG [Concomitant]
     Active Substance: INSULIN LISPRO
     Dosage: 8 UNITS WITH DINNER+ SS, MAX DAILY DOSE OF 23 UNITS
     Dates: start: 20230131
  5. HUMULIN N [Concomitant]
     Active Substance: INSULIN HUMAN
     Dosage: 16 U, BID AT BREAKFAST AND BEDTIME
     Dates: start: 20231011
  6. NOVOLIN N [Concomitant]
     Active Substance: INSULIN HUMAN
     Dosage: 16 U, BID AT BREAKFAST AND BEDTIME
     Dates: start: 20231011
  7. SYNTHROID [Concomitant]
     Active Substance: LEVOTHYROXINE SODIUM
     Dosage: 1 DF, QD, BEFORE BREAKFAST
     Route: 048
     Dates: start: 20230929
  8. LEVOTHROID [Concomitant]
     Active Substance: LEVOTHYROXINE SODIUM
     Dosage: 1 DF, QD BEFORE BREAKFAST
     Route: 048
     Dates: start: 20230929
  9. ZESTRIL [Concomitant]
     Active Substance: LISINOPRIL
     Dosage: 1 DF, QD
     Route: 048
     Dates: start: 20230725
  10. GLUCOPHAGE XR [Concomitant]
     Active Substance: METFORMIN HYDROCHLORIDE
     Dosage: 2 DF, BID WITH BREAKFAST AND SUPPER
     Route: 048
     Dates: start: 20230214
  11. LOPRESSOR [Concomitant]
     Active Substance: METOPROLOL TARTRATE
     Dosage: 1 DF, BID
     Route: 048
     Dates: start: 20230113
  12. NITROSTAT [Concomitant]
     Active Substance: NITROGLYCERIN
     Indication: Chest pain
     Dosage: DISSOLVE 1 TABLET UNDER THE TONGUE EVERY 5 MINUTES
     Dates: start: 20230113
  13. CRESTOR [Concomitant]
     Active Substance: ROSUVASTATIN CALCIUM
     Dosage: 1 DF, QD
     Route: 048
     Dates: start: 20230725
  14. LEVEMIR [Concomitant]
     Active Substance: INSULIN DETEMIR
     Indication: Type 2 diabetes mellitus
     Dosage: 40 U
     Route: 065

REACTIONS (3)
  - Rash [Unknown]
  - Drug hypersensitivity [Unknown]
  - Pruritus [Unknown]

NARRATIVE: CASE EVENT DATE: 20230101
